FAERS Safety Report 18568580 (Version 1)
Quarter: 2020Q4

REPORT INFORMATION
  Report Type: Spontaneous
  Country: NL (occurrence: IT)
  Receive Date: 20201202
  Receipt Date: 20201202
  Transmission Date: 20210114
  Serious: Yes (Hospitalization)
  Sender: FDA-Public Use
  Company Number: NL-KYOWAKIRIN-2020BKK020630

PATIENT

DRUGS (1)
  1. POTELIGEO [Suspect]
     Active Substance: MOGAMULIZUMAB-KPKC
     Indication: CUTANEOUS T-CELL LYMPHOMA
     Dosage: 60 MG, CYCLICAL
     Route: 042
     Dates: start: 20201103, end: 20201103

REACTIONS (1)
  - Angina unstable [Unknown]

NARRATIVE: CASE EVENT DATE: 20201110
